FAERS Safety Report 4981122-3 (Version None)
Quarter: 2006Q2

REPORT INFORMATION
  Report Type: 
  Country: None (occurrence: None)
  Receive Date: 20060424
  Receipt Date: 20060414
  Transmission Date: 20061013
  Serious: Yes (Death)
  Sender: FDA-Public Use
  Company Number: US-JNJFOC-20060403579

PATIENT
  Age: 83 Year
  Sex: Female

DRUGS (1)
  1. RAZADYNE [Suspect]

REACTIONS (1)
  - RENAL FAILURE [None]
